FAERS Safety Report 16474889 (Version 1)
Quarter: 2019Q3

REPORT INFORMATION
  Report Type: Spontaneous
  Country: US (occurrence: US)
  Receive Date: 20190624
  Receipt Date: 20190624
  Transmission Date: 20191004
  Serious: No
  Sender: FDA-Public Use
  Company Number: None

PATIENT
  Age: 60 Year
  Sex: Female
  Weight: 50.4 kg

DRUGS (1)
  1. BOTOX [Suspect]
     Active Substance: ONABOTULINUMTOXINA
     Indication: MIGRAINE
     Dosage: ?          QUANTITY:200 INJECTION(S);OTHER FREQUENCY:EVERY 3 MONTHS AND;OTHER ROUTE:INJECTED INTO HEAD NECK AREA?
     Dates: start: 20120102, end: 20190530

REACTIONS (4)
  - Paralysis [None]
  - Muscle atrophy [None]
  - Dysphagia [None]
  - Neck pain [None]

NARRATIVE: CASE EVENT DATE: 20190530
